FAERS Safety Report 5278436-9 (Version None)
Quarter: 2007Q1

REPORT INFORMATION
  Report Type: 
  Country: None (occurrence: None)
  Receive Date: 20070322
  Receipt Date: 20070306
  Transmission Date: 20070707
  Serious: Yes (Hospitalization)
  Sender: FDA-Public Use
  Company Number: DSA_29582_2007

PATIENT
  Age: 61 Year
  Sex: Male

DRUGS (16)
  1. BI-TILDIEM [Suspect]
     Indication: ESSENTIAL HYPERTENSION
     Dosage: 120 MG BID PO
     Route: 048
  2. IRBESARTAN [Suspect]
     Indication: ESSENTIAL HYPERTENSION
     Dosage: 300 MG Q DAY PO
     Route: 048
  3. ALTIZIDE W/SPIRONOLACTONE [Suspect]
     Indication: ESSENTIAL HYPERTENSION
     Dosage: 15 MG Q DAY PO
     Route: 048
     Dates: end: 20070208
  4. CORTANCYL [Concomitant]
  5. TERCIAN [Concomitant]
  6. EFFEXOR [Concomitant]
  7. DEPAKENE [Concomitant]
  8. IDARAC [Concomitant]
  9. ACETAMINOPHEN [Concomitant]
  10. AUGMENTIN '125' [Concomitant]
  11. SERETIDE [Concomitant]
  12. SPIRIVA [Concomitant]
  13. BRONCHODUAL [Concomitant]
  14. BRICANYL [Concomitant]
  15. ATROVENT [Concomitant]
  16. SURBRONC [Concomitant]

REACTIONS (17)
  - BLOOD SODIUM DECREASED [None]
  - BRAIN SCAN ABNORMAL [None]
  - DISCOMFORT [None]
  - ELECTROCARDIOGRAM T WAVE AMPLITUDE DECREASED [None]
  - FALL [None]
  - FLATULENCE [None]
  - HEAD INJURY [None]
  - HEADACHE [None]
  - HEPATOMEGALY [None]
  - LOSS OF CONSCIOUSNESS [None]
  - OCULAR HYPERTENSION [None]
  - ORTHOSTATIC HYPOTENSION [None]
  - PRODUCTIVE COUGH [None]
  - RALES [None]
  - RESPIRATORY DISORDER [None]
  - SINUS ARRHYTHMIA [None]
  - VOMITING [None]
